FAERS Safety Report 8255291-6 (Version None)
Quarter: 2012Q2

REPORT INFORMATION
  Report Type: 
  Country: None (occurrence: None)
  Receive Date: 20120403
  Receipt Date: 20120322
  Transmission Date: 20120825
  Serious: Yes (Hospitalization, Other)
  Sender: FDA-Public Use
  Company Number: US-SANOFI-AVENTIS-2012SA002535

PATIENT
  Age: 78 Year
  Sex: Female
  Weight: 63.5 kg

DRUGS (5)
  1. CITRACAL [Concomitant]
  2. VITAMIN E [Concomitant]
  3. ASCORBIC ACID [Concomitant]
  4. LOVENOX [Suspect]
     Route: 030
     Dates: start: 20111216, end: 20111219
  5. NEBIVOLOL [Concomitant]

REACTIONS (4)
  - PULMONARY EMBOLISM [None]
  - KNEE ARTHROPLASTY [None]
  - INJECTION SITE PAIN [None]
  - THROMBOSIS [None]
